FAERS Safety Report 5780207-1 (Version None)
Quarter: 2008Q2

REPORT INFORMATION
  Report Type: 
  Country: None (occurrence: None)
  Receive Date: 20080620
  Receipt Date: 20080610
  Transmission Date: 20081010
  Serious: Yes (Death, Hospitalization)
  Sender: FDA-Public Use
  Company Number: NL-PURDUE-GBR_2008_0004117

PATIENT
  Age: 58 Year
  Sex: Male

DRUGS (10)
  1. MORPHINE SULFATE [Suspect]
     Indication: DRUG USE FOR UNKNOWN INDICATION
     Route: 065
  2. TARCEVA [Suspect]
     Indication: NON-SMALL CELL LUNG CANCER
     Dosage: 150 MG, UNK
     Route: 065
     Dates: start: 20080205, end: 20080304
  3. DOMPERIDONE [Concomitant]
     Route: 065
  4. DICLOFENAC SODIUM [Concomitant]
     Route: 065
     Dates: start: 20070101
  5. OXYCODONE HCL [Concomitant]
     Route: 065
     Dates: start: 20070101
  6. NAPROXEN [Concomitant]
     Route: 065
  7. OMEPRAZOLE [Concomitant]
     Route: 065
  8. NADROPARIN [Concomitant]
     Route: 065
  9. PREDNISONE TAB [Concomitant]
     Route: 065
  10. GABAPENTIN [Concomitant]
     Route: 065
     Dates: end: 20080304

REACTIONS (2)
  - CONSTIPATION [None]
  - MALIGNANT NEOPLASM PROGRESSION [None]
